FAERS Safety Report 23658745 (Version 1)
Quarter: 2024Q1

REPORT INFORMATION
  Report Type: Spontaneous
  Country: US (occurrence: US)
  Receive Date: 20240321
  Receipt Date: 20240321
  Transmission Date: 20240410
  Serious: No
  Sender: FDA-Public Use
  Company Number: US-PFIZER INC-202400068678

PATIENT
  Age: 34 Year
  Sex: Female
  Weight: 86.18 kg

DRUGS (3)
  1. PAXLOVID [Suspect]
     Active Substance: NIRMATRELVIR\RITONAVIR
     Indication: COVID-19 treatment
     Dosage: = [NIRMATRELVIR 300 MG]/[RITONAVIR 100 MG]
     Route: 048
     Dates: start: 20240319
  2. IBUPROFEN [Concomitant]
     Active Substance: IBUPROFEN
     Dosage: UNK
  3. BENZONATATE [Concomitant]
     Active Substance: BENZONATATE
     Indication: Cough
     Dosage: 200 MG, AS NEEDED
     Dates: start: 20240318

REACTIONS (10)
  - Heart rate irregular [Recovered/Resolved]
  - Dyspnoea [Unknown]
  - Insomnia [Unknown]
  - Productive cough [Unknown]
  - Tachycardia [Unknown]
  - Headache [Unknown]
  - Head discomfort [Unknown]
  - Feeling abnormal [Unknown]
  - Product label confusion [Unknown]
  - Intentional product use issue [Unknown]

NARRATIVE: CASE EVENT DATE: 20240301
